FAERS Safety Report 22761466 (Version 6)
Quarter: 2025Q4

REPORT INFORMATION
  Report Type: Spontaneous
  Country: CA (occurrence: CA)
  Receive Date: 20230728
  Receipt Date: 20251013
  Transmission Date: 20260117
  Serious: Yes (Other)
  Sender: PFIZER
  Company Number: CA-PFIZER INC-202201224436

PATIENT
  Age: 8 Year
  Sex: Male

DRUGS (6)
  1. NGENLA [Suspect]
     Active Substance: SOMATROGON-GHLA
     Indication: Growth hormone deficiency
     Dosage: 11 MG, WEEKLY, 60MG PREFILLED PEN
     Route: 058
     Dates: start: 20220928, end: 2023
  2. NGENLA [Suspect]
     Active Substance: SOMATROGON-GHLA
     Dosage: UNK
     Route: 058
     Dates: start: 202210
  3. NGENLA [Suspect]
     Active Substance: SOMATROGON-GHLA
     Dosage: 13.5 MG, WEEKLY, 60MG PREFILLED PEN
     Route: 058
     Dates: start: 2023, end: 2024
  4. NGENLA [Suspect]
     Active Substance: SOMATROGON-GHLA
     Dosage: 16 MG, WEEKLY(60MG PREFILLED PEN)
     Route: 058
     Dates: start: 20240408, end: 2024
  5. NGENLA [Suspect]
     Active Substance: SOMATROGON-GHLA
     Dosage: 17 MG, WEEKLY(60MG PREFILLED PEN)
     Route: 058
     Dates: start: 2024, end: 2025
  6. NGENLA [Suspect]
     Active Substance: SOMATROGON-GHLA
     Dosage: 1 DF, WEEKLY(18.5 MG ,60MG PREFILLED PEN)
     Route: 058
     Dates: start: 2025

REACTIONS (10)
  - Device defective [Unknown]
  - Incorrect dose administered by device [Unknown]
  - Device loosening [Unknown]
  - Device use confusion [Unknown]
  - Insulin-like growth factor decreased [Recovered/Resolved]
  - Therapeutic product effect decreased [Unknown]
  - Headache [Not Recovered/Not Resolved]
  - Abdominal pain upper [Not Recovered/Not Resolved]
  - Injection site pain [Recovered/Resolved]
  - Weight increased [Unknown]

NARRATIVE: CASE EVENT DATE: 20220101
